FAERS Safety Report 7865165-8 (Version None)
Quarter: 2011Q4

REPORT INFORMATION
  Report Type: 
  Country: None (occurrence: None)
  Receive Date: 20111028
  Receipt Date: 20101025
  Transmission Date: 20120403
  Serious: No
  Sender: FDA-Public Use
  Company Number: US-GLAXOSMITHKLINE-A0888650A

PATIENT
  Age: 63 Year
  Sex: Female

DRUGS (11)
  1. ASCORBIC ACID [Concomitant]
  2. ESTRACE [Concomitant]
     Route: 067
  3. ALIGN [Concomitant]
  4. NITROFURANTOIN [Concomitant]
  5. CRANBERRY TABLETS [Concomitant]
  6. NEXIUM [Concomitant]
  7. VENTOLIN [Concomitant]
  8. CITRACAL [Concomitant]
  9. ADVAIR DISKUS 100/50 [Suspect]
     Indication: ASTHMA
     Dosage: 1PUFF TWICE PER DAY
     Route: 055
     Dates: start: 20091001
  10. SINGULAIR [Concomitant]
  11. VITAMIN D [Concomitant]

REACTIONS (2)
  - PRODUCT QUALITY ISSUE [None]
  - NOCTURNAL DYSPNOEA [None]
